FAERS Safety Report 15375783 (Version 1)
Quarter: 2018Q3

REPORT INFORMATION
  Report Type: Spontaneous
  Country: CN (occurrence: CN)
  Receive Date: 20180912
  Receipt Date: 20180912
  Transmission Date: 20181010
  Serious: Yes (Death, Other)
  Sender: FDA-Public Use
  Company Number: CN-SA-2018SA248187

PATIENT
  Age: 58 Year
  Sex: Male
  Weight: 61 kg

DRUGS (5)
  1. HEPARIN CALCIUM [Suspect]
     Active Substance: HEPARIN CALCIUM
     Indication: COAGULOPATHY
     Dosage: 5000 U, BID
     Route: 058
     Dates: start: 20180701, end: 20180701
  2. PLAVIX [Suspect]
     Active Substance: CLOPIDOGREL BISULFATE
     Indication: PLATELET AGGREGATION
     Dosage: 300 MG, QD
     Route: 048
     Dates: start: 20180701, end: 20180701
  3. TNK?TPA [Suspect]
     Active Substance: TENECTEPLASE
     Indication: ACUTE MYOCARDIAL INFARCTION
     Dosage: 16 MG, QD
     Route: 040
     Dates: start: 20180701, end: 20180701
  4. ACETYLSALICYLIC ACID [Suspect]
     Active Substance: ASPIRIN
     Indication: PLATELET AGGREGATION
     Dosage: 300 MG, QD
     Route: 048
     Dates: start: 20180701, end: 20180701
  5. PLASMINOGEN [Suspect]
     Active Substance: PLASMINOGEN
     Indication: ACUTE MYOCARDIAL INFARCTION
     Dosage: 16 MG, QD
     Route: 042
     Dates: start: 20180701, end: 20180701

REACTIONS (3)
  - Ventricular fibrillation [Fatal]
  - Oxygen saturation decreased [Fatal]
  - Cardiac arrest [Fatal]

NARRATIVE: CASE EVENT DATE: 20180701
